FAERS Safety Report 26074118 (Version 1)
Quarter: 2025Q4

REPORT INFORMATION
  Report Type: Spontaneous
  Country: EU (occurrence: EU)
  Receive Date: 20251121
  Receipt Date: 20251121
  Transmission Date: 20260117
  Serious: Yes (Life-Threatening, Hospitalization, Other)
  Sender: Haleon PLC
  Company Number: EU-NOMAADVRE-RELISV-2024-Vzbp4p

PATIENT
  Age: 61 Year
  Sex: Female

DRUGS (5)
  1. VOLTAREN [Interacting]
     Active Substance: DICLOFENAC SODIUM
     Indication: Arthralgia
     Dosage: 50 MILLIGRAMS (1 TABLET) UP TO 3 TIMES DAILY. USED ON A REGULAR BASIS
  2. FLAGYL [Interacting]
     Active Substance: METRONIDAZOLE\METRONIDAZOLE HYDROCHLORIDE
     Indication: Cholecystitis
     Dates: start: 20240416, end: 20240421
  3. BACTRIM [Interacting]
     Active Substance: SULFAMETHOXAZOLE\TRIMETHOPRIM
     Indication: Cholecystitis
     Dosage: 400MG + 80 MG
     Dates: start: 20240416, end: 20240422
  4. RAMIPRIL [Interacting]
     Active Substance: RAMIPRIL
     Indication: Product used for unknown indication
     Dosage: 1/2 TABLET DAILY, STRENGTH: 2.5MG
  5. METOCLOPRAMIDE HYDROCHLORIDE [Interacting]
     Active Substance: METOCLOPRAMIDE HYDROCHLORIDE
     Indication: Product used for unknown indication
     Dosage: TAKEN OUT ON PRESCRIPTION 16/APR/2024

REACTIONS (8)
  - Hyperkalaemia [Recovering/Resolving]
  - Dyspnoea exertional [Recovering/Resolving]
  - Abdominal pain [Recovering/Resolving]
  - Fatigue [Recovering/Resolving]
  - Malaise [Recovering/Resolving]
  - Hyponatraemia [Recovering/Resolving]
  - Drug interaction [Recovering/Resolving]
  - Muscle spasms [Recovering/Resolving]

NARRATIVE: CASE EVENT DATE: 20240416
